FAERS Safety Report 26102491 (Version 1)
Quarter: 2025Q4

REPORT INFORMATION
  Report Type: Spontaneous
  Country: EU (occurrence: EU)
  Receive Date: 20251128
  Receipt Date: 20251128
  Transmission Date: 20260117
  Serious: Yes (Life-Threatening, Hospitalization)
  Sender: BIOGEN
  Company Number: None

PATIENT
  Age: 66 Year
  Sex: Male

DRUGS (1)
  1. TYSABRI [Suspect]
     Active Substance: NATALIZUMAB
     Indication: Multiple sclerosis
     Dosage: CONTINUED USE OF MEDICINAL PRODUCT
     Dates: start: 20080513

REACTIONS (5)
  - Lung adenocarcinoma [Recovering/Resolving]
  - Pneumonitis [Recovering/Resolving]
  - Lung adenocarcinoma recurrent [Recovering/Resolving]
  - Pulmonary radiation injury [Recovering/Resolving]
  - Radiotherapy [Recovering/Resolving]

NARRATIVE: CASE EVENT DATE: 20211207
